FAERS Safety Report 4848949-X (Version None)
Quarter: 2005Q4

REPORT INFORMATION
  Report Type: 
  Country: None (occurrence: None)
  Receive Date: 20051208
  Receipt Date: 20051118
  Transmission Date: 20060501
  Serious: Yes (Disabling)
  Sender: FDA-Public Use
  Company Number: US-MERCK-0511USA03311

PATIENT
  Age: 46 Year
  Sex: Male

DRUGS (5)
  1. VYTORIN [Suspect]
     Indication: BLOOD CHOLESTEROL INCREASED
     Route: 048
     Dates: start: 20050801, end: 20051114
  2. CIPRO [Concomitant]
     Route: 065
  3. METHADONE HYDROCHLORIDE [Concomitant]
     Route: 065
  4. WELLBUTRIN SR [Concomitant]
     Route: 065
  5. LEXAPRO [Concomitant]
     Route: 065

REACTIONS (4)
  - JOINT SWELLING [None]
  - MYOPATHY [None]
  - OEDEMA PERIPHERAL [None]
  - PAIN IN EXTREMITY [None]
